FAERS Safety Report 6707730-7 (Version None)
Quarter: 2010Q2

REPORT INFORMATION
  Report Type: 
  Country: None (occurrence: None)
  Receive Date: 20100503
  Receipt Date: 20090619
  Transmission Date: 20101027
  Serious: No
  Sender: FDA-Public Use
  Company Number: US-ASTRAZENECA-2009UW16238

PATIENT
  Age: 72 Year
  Sex: Female
  Weight: 89.8 kg

DRUGS (3)
  1. NEXIUM [Suspect]
     Route: 048
     Dates: start: 20090201
  2. SYNTHROID [Concomitant]
  3. ANTIHYPERTENSIVES [Concomitant]

REACTIONS (1)
  - LARYNGITIS [None]
